FAERS Safety Report 16460986 (Version 1)
Quarter: 2019Q2

REPORT INFORMATION
  Report Type: Spontaneous
  Country: GB (occurrence: GB)
  Receive Date: 20190621
  Receipt Date: 20190621
  Transmission Date: 20190711
  Serious: Yes (Hospitalization, Other)
  Sender: FDA-Public Use
  Company Number: GB-ALKEM LABORATORIES LIMITED-GB-ALKEM-2019-03022

PATIENT
  Age: 52 Year
  Sex: Male

DRUGS (6)
  1. CISPLATIN. [Concomitant]
     Active Substance: CISPLATIN
     Indication: OESOPHAGEAL ADENOCARCINOMA
     Dosage: 60 MILLIGRAM/SQ. METER, REPEATED EVERY 21 DAYS, INFUSION
     Route: 065
  2. CISPLATIN. [Concomitant]
     Active Substance: CISPLATIN
     Indication: METASTASES TO LIVER
  3. EPIRUBICIN [Concomitant]
     Active Substance: EPIRUBICIN
     Indication: METASTASES TO LIVER
  4. CAPECITABINE. [Suspect]
     Active Substance: CAPECITABINE
     Indication: OESOPHAGEAL ADENOCARCINOMA
     Dosage: 625 MILLIGRAM/SQ. METER, BID, FOR 21 DAYS STOPPED
     Route: 048
  5. EPIRUBICIN [Concomitant]
     Active Substance: EPIRUBICIN
     Indication: OESOPHAGEAL ADENOCARCINOMA
     Dosage: 50 MILLIGRAM/SQ. METER, REPEATED EVERY 21 DAYS, INFUSION
     Route: 065
  6. CAPECITABINE. [Suspect]
     Active Substance: CAPECITABINE
     Indication: METASTASES TO LIVER
     Dosage: 625 MILLIGRAM/SQ. METER, BID, FOR 21 DAYS 3RD CYCLE
     Route: 048

REACTIONS (2)
  - Encephalopathy [Recovered/Resolved]
  - Nausea [Unknown]
